FAERS Safety Report 11115534 (Version 1)
Quarter: 2015Q2

REPORT INFORMATION
  Report Type: Spontaneous
  Country: IT (occurrence: IT)
  Receive Date: 20150515
  Receipt Date: 20150515
  Transmission Date: 20150821
  Serious: Yes (Hospitalization)
  Sender: FDA-Public Use
  Company Number: IT-ABBVIE-15P-083-1387758-00

PATIENT
  Age: 59 Year
  Sex: Male

DRUGS (4)
  1. ADALIMUMAB [Suspect]
     Active Substance: ADALIMUMAB
     Indication: PSORIASIS
     Dosage: STARTED AT 80 MG INDUCTION
     Route: 065
     Dates: start: 2010, end: 2010
  2. ETANERCEPT [Suspect]
     Active Substance: ETANERCEPT
     Indication: PSORIASIS
     Dosage: FOR 12 WEEKS, FOLLOWED BY 50 MG /WEEK
     Route: 065
     Dates: start: 200903
  3. ETANERCEPT [Suspect]
     Active Substance: ETANERCEPT
     Route: 065
     Dates: end: 200909
  4. ETANERCEPT [Suspect]
     Active Substance: ETANERCEPT
     Route: 065
     Dates: start: 200912

REACTIONS (2)
  - Hepatitis cholestatic [Recovering/Resolving]
  - B-cell lymphoma [Recovering/Resolving]
